FAERS Safety Report 15791631 (Version 2)
Quarter: 2019Q1

REPORT INFORMATION
  Report Type: Spontaneous
  Country: US (occurrence: US)
  Receive Date: 20190105
  Receipt Date: 20190228
  Transmission Date: 20190417
  Serious: Yes (Hospitalization)
  Sender: FDA-Public Use
  Company Number: US-UNITED THERAPEUTICS-UNT-2018-021704

PATIENT
  Age: 72 Year
  Sex: Female
  Weight: 69.39 kg

DRUGS (8)
  1. TYVASO [Suspect]
     Active Substance: TREPROSTINIL
     Dosage: UNK
  2. ALKA SELTZER                       /00002701/ [Suspect]
     Active Substance: ASPIRIN
     Indication: PYREXIA
  3. TYVASO [Suspect]
     Active Substance: TREPROSTINIL
     Indication: PULMONARY ARTERIAL HYPERTENSION
     Dosage: 18-54 ?G, QID
     Dates: start: 20171017
  4. ALKA SELTZER                       /00002701/ [Suspect]
     Active Substance: ASPIRIN
     Indication: OROPHARYNGEAL PAIN
     Dosage: UNK
     Route: 065
  5. ALKA SELTZER                       /00002701/ [Suspect]
     Active Substance: ASPIRIN
     Indication: SPUTUM DISCOLOURED
  6. LETAIRIS [Concomitant]
     Active Substance: AMBRISENTAN
     Indication: PRODUCT USED FOR UNKNOWN INDICATION
     Route: 065
  7. ADEMPAS [Concomitant]
     Active Substance: RIOCIGUAT
     Indication: PRODUCT USED FOR UNKNOWN INDICATION
     Route: 065
  8. ALKA SELTZER                       /00002701/ [Suspect]
     Active Substance: ASPIRIN
     Indication: PRODUCTIVE COUGH

REACTIONS (7)
  - Sputum discoloured [Unknown]
  - Oropharyngeal pain [Unknown]
  - Bronchitis [Unknown]
  - Malaise [Unknown]
  - Pyrexia [Unknown]
  - Blood pressure increased [Unknown]
  - Drug interaction [Unknown]

NARRATIVE: CASE EVENT DATE: 201811
